FAERS Safety Report 21324035 (Version 2)
Quarter: 2022Q3

REPORT INFORMATION
  Report Type: Report from Study
  Country: US (occurrence: US)
  Receive Date: 20220912
  Receipt Date: 20220927
  Transmission Date: 20221026
  Serious: Yes (Hospitalization, Other)
  Sender: FDA-Public Use
  Company Number: US-TAKEDA-2022TUS052103

PATIENT
  Sex: Female
  Weight: 64.85 kg

DRUGS (13)
  1. HUMAN IMMUNOGLOBULIN G [Suspect]
     Active Substance: HUMAN IMMUNOGLOBULIN G
     Indication: Blood immunoglobulin G abnormal
     Dosage: 1000 MILLIGRAM/KILOGRAM, 1/WEEK
     Route: 042
  2. HUMAN IMMUNOGLOBULIN G [Suspect]
     Active Substance: HUMAN IMMUNOGLOBULIN G
     Indication: Heart disease congenital
     Dosage: 1000 MILLIGRAM/KILOGRAM, Q2WEEKS
     Route: 042
     Dates: start: 20220809
  3. DIPHENHYDRAMINE [Concomitant]
     Active Substance: DIPHENHYDRAMINE
  4. COLCHICINE [Concomitant]
     Active Substance: COLCHICINE
  5. SODIUM CHLORIDE [Concomitant]
     Active Substance: SODIUM CHLORIDE
  6. EPINEPHRINE [Concomitant]
     Active Substance: EPINEPHRINE
  7. HYDROXYCHLOROQUINE SULFATE [Concomitant]
     Active Substance: HYDROXYCHLOROQUINE SULFATE
  8. ACETAMINOPHEN [Concomitant]
     Active Substance: ACETAMINOPHEN
  9. VITAMINS [Concomitant]
     Active Substance: VITAMINS
  10. ASPIRIN [Concomitant]
     Active Substance: ASPIRIN
  11. LIDOCAINE [Concomitant]
     Active Substance: LIDOCAINE
  12. GABAPENTIN [Concomitant]
     Active Substance: GABAPENTIN
  13. NITROFURANTOIN [Concomitant]
     Active Substance: NITROFURANTOIN

REACTIONS (6)
  - Myopericarditis [Not Recovered/Not Resolved]
  - Systemic lupus erythematosus [Unknown]
  - Urinary tract infection [Unknown]
  - Pregnancy [Unknown]
  - Back pain [Unknown]
  - Headache [Unknown]
